FAERS Safety Report 26068291 (Version 1)
Quarter: 2025Q4

REPORT INFORMATION
  Report Type: Spontaneous
  Country: US (occurrence: US)
  Receive Date: 20251120
  Receipt Date: 20251120
  Transmission Date: 20260118
  Serious: No
  Sender: SANDOZ
  Company Number: US-SANDOZ-SDZ2025US086396

PATIENT
  Sex: Female

DRUGS (1)
  1. ADALIMUMAB [Suspect]
     Active Substance: ADALIMUMAB
     Indication: Product used for unknown indication
     Dosage: ADALIMUMAB (ADALIMUMAB-ADAZ) 40MG  INJECTION, FOR SUBCUTANEOUS USE IN  PREFILLED PEN, FREQUENCY:  EV
     Route: 065

REACTIONS (3)
  - Circumstance or information capable of leading to medication error [Unknown]
  - Device mechanical issue [Unknown]
  - Needle issue [Unknown]
